FAERS Safety Report 5723811-9 (Version None)
Quarter: 2008Q2

REPORT INFORMATION
  Report Type: 
  Country: None (occurrence: None)
  Receive Date: 20080430
  Receipt Date: 20080422
  Transmission Date: 20081010
  Serious: Yes (Other)
  Sender: FDA-Public Use
  Company Number: US-JNJFOC-20080405998

PATIENT
  Age: 3 Week
  Sex: Female
  Weight: 4.08 kg

DRUGS (1)
  1. INFANTS MYLICON [Suspect]
     Indication: FLATULENCE
     Route: 048

REACTIONS (1)
  - HAEMATOCHEZIA [None]
